FAERS Safety Report 7055808-3 (Version None)
Quarter: 2010Q4

REPORT INFORMATION
  Report Type: 
  Country: None (occurrence: None)
  Receive Date: 20101021
  Receipt Date: 20101012
  Transmission Date: 20110411
  Serious: Yes (Other)
  Sender: FDA-Public Use
  Company Number: US-WYE-H18159710

PATIENT
  Sex: Female
  Weight: 53.57 kg

DRUGS (2)
  1. PREMARIN [Suspect]
     Indication: HOT FLUSH
     Route: 048
     Dates: start: 19830101
  2. PREMARIN [Suspect]
     Indication: VULVOVAGINAL DRYNESS
     Dosage: UNKNOWN
     Route: 067
     Dates: start: 20070101

REACTIONS (7)
  - BLADDER INJURY [None]
  - BLADDER PAIN [None]
  - POLLAKIURIA [None]
  - POST-TRAUMATIC STRESS DISORDER [None]
  - PRODUCT QUALITY ISSUE [None]
  - URINARY INCONTINENCE [None]
  - WEIGHT DECREASED [None]
